FAERS Safety Report 18964565 (Version 7)
Quarter: 2024Q1

REPORT INFORMATION
  Report Type: Spontaneous
  Country: US (occurrence: US)
  Receive Date: 20210303
  Receipt Date: 20240201
  Transmission Date: 20240410
  Serious: No
  Sender: FDA-Public Use
  Company Number: US-PFIZER INC-2021156345

PATIENT
  Age: 69 Year
  Sex: Female
  Weight: 55.782 kg

DRUGS (9)
  1. XELJANZ XR [Suspect]
     Active Substance: TOFACITINIB CITRATE
     Indication: Rheumatoid arthritis
     Dosage: 11 MG, DAILY
     Route: 048
  2. XELJANZ XR [Suspect]
     Active Substance: TOFACITINIB CITRATE
     Dosage: 11 MG, 1X/DAY
     Dates: start: 20180724
  3. OMEPRAZOLE [Concomitant]
     Active Substance: OMEPRAZOLE
     Dosage: UNK
  4. OXYBUTYNIN [Concomitant]
     Active Substance: OXYBUTYNIN\OXYBUTYNIN CHLORIDE
     Dosage: UNK
  5. LEVOTHYROXINE [Concomitant]
     Active Substance: LEVOTHYROXINE\LEVOTHYROXINE SODIUM
     Dosage: UNK
  6. DILTIAZEM [Concomitant]
     Active Substance: DILTIAZEM
     Dosage: UNK
  7. VITAMIN D3 [Concomitant]
     Active Substance: CHOLECALCIFEROL
     Dosage: UNK
  8. ASPIRIN [Concomitant]
     Active Substance: ASPIRIN
     Dosage: UNK
  9. ACETAMINOPHEN\HYDROCODONE [Concomitant]
     Active Substance: ACETAMINOPHEN\HYDROCODONE
     Dosage: UNK

REACTIONS (11)
  - Osteoarthritis [Recovered/Resolved]
  - Hypoacusis [Recovered/Resolved]
  - Gait disturbance [Recovered/Resolved]
  - Joint swelling [Recovered/Resolved]
  - Arthralgia [Recovered/Resolved]
  - Burning sensation [Recovered/Resolved]
  - Back pain [Not Recovered/Not Resolved]
  - Musculoskeletal chest pain [Recovered/Resolved]
  - Pain in jaw [Recovered/Resolved]
  - Oral pain [Recovered/Resolved]
  - Normocytic anaemia [Not Recovered/Not Resolved]

NARRATIVE: CASE EVENT DATE: 20230601
